FAERS Safety Report 16251093 (Version 1)
Quarter: 2019Q2

REPORT INFORMATION
  Report Type: Spontaneous
  Country: CA (occurrence: CA)
  Receive Date: 20190429
  Receipt Date: 20190429
  Transmission Date: 20190711
  Serious: Yes (Other)
  Sender: FDA-Public Use
  Company Number: CA-NALPROPION PHARMACEUTICALS INC.-2019-007166

PATIENT

DRUGS (1)
  1. CONTRAVE [Suspect]
     Active Substance: BUPROPION HYDROCHLORIDE\NALTREXONE HYDROCHLORIDE
     Indication: WEIGHT CONTROL
     Dosage: 1 TABLET IN THE MORNING (1 DOSAGE FORMS,1 IN 1 D)
     Route: 048
     Dates: start: 20190402, end: 20190409

REACTIONS (3)
  - Angina pectoris [Unknown]
  - Motion sickness [Unknown]
  - Dizziness [Unknown]

NARRATIVE: CASE EVENT DATE: 201904
